FAERS Safety Report 19814487 (Version 1)
Quarter: 2021Q3

REPORT INFORMATION
  Report Type: Report from Study
  Country: NL (occurrence: NL)
  Receive Date: 20210910
  Receipt Date: 20210910
  Transmission Date: 20211014
  Serious: Yes (Other)
  Sender: FDA-Public Use
  Company Number: NL-SA-2019SA178991

PATIENT

DRUGS (1)
  1. DUPILUMAB [Suspect]
     Active Substance: DUPILUMAB
     Indication: DERMATITIS ATOPIC
     Dosage: 300 MG, QOW
     Route: 065
     Dates: start: 20180823

REACTIONS (3)
  - Conjunctivitis allergic [Unknown]
  - Eye pruritus [Unknown]
  - Ocular surface disease [Not Recovered/Not Resolved]

NARRATIVE: CASE EVENT DATE: 20181008
